FAERS Safety Report 7761449-2 (Version None)
Quarter: 2011Q3

REPORT INFORMATION
  Report Type: 
  Country: None (occurrence: None)
  Receive Date: 20110920
  Receipt Date: 20110826
  Transmission Date: 20111222
  Serious: No
  Sender: FDA-Public Use
  Company Number: US-JNJFOC-20110812564

PATIENT
  Age: 27 Year
  Sex: Male

DRUGS (2)
  1. INVEGA [Suspect]
     Indication: SCHIZOAFFECTIVE DISORDER
     Route: 048
     Dates: start: 20110801
  2. ZOLOFT [Concomitant]
     Indication: ANXIETY
     Route: 048

REACTIONS (1)
  - HEADACHE [None]
